FAERS Safety Report 8921439 (Version 1)
Quarter: 2012Q4

REPORT INFORMATION
  Report Type: 
  Country: US (occurrence: US)
  Receive Date: 20121121
  Receipt Date: 20121121
  Transmission Date: 20130627
  Serious: Yes (Hospitalization, Disabling, Other)
  Sender: FDA-Public Use
  Company Number: US-009507513-1003USA02080

PATIENT

DRUGS (8)
  1. FOSAMAX PLUS D [Suspect]
     Indication: OSTEOPOROSIS PROPHYLAXIS
     Dosage: 70mg/2800
     Route: 048
     Dates: start: 199904, end: 20100306
  2. OCUVITE [Concomitant]
     Indication: MACULE
     Dosage: 1 DF, qd
     Route: 048
  3. SOTALOL HYDROCHLORIDE [Concomitant]
     Indication: HEART RATE IRREGULAR
     Dosage: 80 mg, UNK
     Route: 048
  4. OMEGA-3 MARINE TRIGLYCERIDES [Concomitant]
     Indication: CORONARY ARTERY DISEASE
     Dosage: 1 DF, UNK
     Route: 048
  5. CALCIUM (UNSPECIFIED) [Concomitant]
     Indication: OSTEOPOROSIS
     Dosage: 1200 mg, UNK
     Route: 048
  6. FLAXSEED [Concomitant]
     Indication: CORONARY ARTERY DISEASE
     Dosage: 1 DF, UNK
     Route: 048
  7. FOSAMAX [Suspect]
     Indication: OSTEOPOROSIS
     Dosage: UNK
     Route: 048
     Dates: start: 1999, end: 2010
  8. FOSAMAX [Suspect]
     Indication: OSTEOPENIA

REACTIONS (8)
  - Femur fracture [Not Recovered/Not Resolved]
  - Pain in extremity [Not Recovered/Not Resolved]
  - Femur fracture [Not Recovered/Not Resolved]
  - Pain in jaw [Not Recovered/Not Resolved]
  - Osteoporosis [Unknown]
  - Multiple fractures [Unknown]
  - Femur fracture [Unknown]
  - Bone density decreased [Unknown]
